FAERS Safety Report 6697637-6 (Version None)
Quarter: 2010Q2

REPORT INFORMATION
  Report Type: 
  Country: None (occurrence: None)
  Receive Date: 20100423
  Receipt Date: 20100415
  Transmission Date: 20101027
  Serious: Yes (Death, Other)
  Sender: FDA-Public Use
  Company Number: 7001439

PATIENT
  Age: 58 Year
  Sex: Male

DRUGS (2)
  1. REBIF [Suspect]
     Indication: MULTIPLE SCLEROSIS
     Dosage: 44 MCG, 3 IN 1 WK, SUBCUTANEOUS;  3 IN 1 WK, SUBCUTANEOUS
     Route: 058
     Dates: start: 20050818, end: 20090418
  2. REBIF [Suspect]
     Indication: MULTIPLE SCLEROSIS
     Dosage: 44 MCG, 3 IN 1 WK, SUBCUTANEOUS;  3 IN 1 WK, SUBCUTANEOUS
     Route: 058
     Dates: start: 20090812, end: 20091215

REACTIONS (5)
  - DEPRESSION [None]
  - INFLUENZA [None]
  - LIMB INJURY [None]
  - MOBILITY DECREASED [None]
  - SUICIDAL IDEATION [None]
